FAERS Safety Report 4614373-8 (Version None)
Quarter: 2005Q2

REPORT INFORMATION
  Report Type: 
  Country: None (occurrence: None)
  Receive Date: 20050307
  Receipt Date: 20050131
  Transmission Date: 20051028
  Serious: No
  Sender: FDA-Public Use
  Company Number: USA050188898

PATIENT
  Age: 81 Year
  Sex: Female

DRUGS (11)
  1. ALIMITA (PEMETREXED) [Suspect]
     Indication: NON-SMALL CELL LUNG CANCER STAGE IV
     Dosage: 855 MG OTHER
     Dates: start: 20041216
  2. FOLIC ACID [Concomitant]
  3. DECADRON [Concomitant]
  4. VITAMIN B-12 [Concomitant]
  5. LASIX [Concomitant]
  6. TOPROL-XL [Concomitant]
  7. BEROCCA [Concomitant]
  8. VITAMIN E [Concomitant]
  9. AGGRENOX [Concomitant]
  10. NEXIUM [Concomitant]
  11. ZYRTEC [Concomitant]

REACTIONS (2)
  - RASH PAPULAR [None]
  - SENSATION OF FOREIGN BODY [None]
